FAERS Safety Report 5015332-6 (Version None)
Quarter: 2006Q2

REPORT INFORMATION
  Report Type: 
  Country: None (occurrence: None)
  Receive Date: 20060601
  Receipt Date: 20040811
  Transmission Date: 20061013
  Serious: Yes (Death, Hospitalization)
  Sender: FDA-Public Use
  Company Number: GB-SANOFI-SYNTHELABO-F01200402422

PATIENT
  Sex: Male

DRUGS (5)
  1. BECOTIDE INHALER [Concomitant]
     Dosage: 2 PUFFS
     Route: 055
     Dates: start: 20040608
  2. PREDNISOLONE [Concomitant]
     Dosage: 40 MG
     Route: 048
     Dates: start: 20040702
  3. CAPECITABINE [Suspect]
     Dosage: 2000 MG TWICE A DAY PER ORAL FROM D1 TO D15
     Route: 048
     Dates: start: 20040209, end: 20040802
  4. OXALIPLATIN [Suspect]
     Route: 042
     Dates: start: 20040209, end: 20040802
  5. VENTOLIN [Concomitant]
     Dosage: 2 PUFFS
     Route: 055
     Dates: start: 20040608

REACTIONS (2)
  - PNEUMONIA [None]
  - PULMONARY FIBROSIS [None]
